FAERS Safety Report 4588700-4 (Version None)
Quarter: 2005Q1

REPORT INFORMATION
  Report Type: 
  Country: None (occurrence: None)
  Receive Date: 20050222
  Receipt Date: 20050214
  Transmission Date: 20050727
  Serious: Yes (Congenital Anomaly, Other)
  Sender: FDA-Public Use
  Company Number: PHFR2005GB00890

PATIENT

DRUGS (1)
  1. GLEEVEC [Suspect]
     Indication: CHRONIC MYELOID LEUKAEMIA
     Route: 064

REACTIONS (9)
  - CONGENITAL ANOMALY [None]
  - DRUG EXPOSURE DURING PREGNANCY [None]
  - EXOMPHALOS [None]
  - HEMIVERTEBRA [None]
  - KIDNEY DUPLEX [None]
  - POOR WEIGHT GAIN NEONATAL [None]
  - PULMONARY HYPOPLASIA [None]
  - RENAL AGENESIS [None]
  - SHOULDER DEFORMITY [None]
